FAERS Safety Report 5144583-5 (Version None)
Quarter: 2006Q4

REPORT INFORMATION
  Report Type: 
  Country: None (occurrence: None)
  Receive Date: 20061031
  Receipt Date: 20061019
  Transmission Date: 20070319
  Serious: Yes (Other)
  Sender: FDA-Public Use
  Company Number: 2006107813

PATIENT
  Age: 59 Year
  Sex: Male
  Weight: 56 kg

DRUGS (4)
  1. LIPITOR [Suspect]
     Indication: HYPERLIPIDAEMIA
     Dosage: 10 MG (10 MG, 1 IN 1 D), ORAL
     Route: 048
     Dates: start: 20060215, end: 20060822
  2. AMLODIPINE [Suspect]
     Dosage: ORAL
     Route: 048
     Dates: start: 20041206
  3. CARDENALIN                     (DOXAZOSIN) [Suspect]
     Dosage: ORAL
     Route: 048
     Dates: start: 20051111
  4. BLOPRESS                    (CANDESARTAN CILEXETIL) [Concomitant]

REACTIONS (2)
  - HYPERGLYCAEMIA [None]
  - RHABDOMYOLYSIS [None]
